FAERS Safety Report 13941173 (Version 2)
Quarter: 2017Q3

REPORT INFORMATION
  Report Type: Spontaneous
  Country: GB (occurrence: GB)
  Receive Date: 20170906
  Receipt Date: 20170927
  Transmission Date: 20171127
  Serious: Yes (Congenital Anomaly)
  Sender: FDA-Public Use
  Company Number: GB-BIOGEN-2017BI00455371

PATIENT

DRUGS (1)
  1. TYSABRI [Suspect]
     Active Substance: NATALIZUMAB
     Indication: PRODUCT USED FOR UNKNOWN INDICATION
     Route: 065
     Dates: start: 20161018, end: 20161115

REACTIONS (2)
  - Foetal exposure during pregnancy [Recovered/Resolved]
  - Congenital choroid plexus cyst [Unknown]

NARRATIVE: CASE EVENT DATE: 20161018
